FAERS Safety Report 15993794 (Version 1)
Quarter: 2019Q1

REPORT INFORMATION
  Report Type: Spontaneous
  Country: DE (occurrence: DE)
  Receive Date: 20190222
  Receipt Date: 20190222
  Transmission Date: 20190418
  Serious: Yes (Hospitalization)
  Sender: FDA-Public Use
  Company Number: DE-ACCORD-108175

PATIENT
  Age: 63 Year
  Sex: Female
  Weight: 56 kg

DRUGS (12)
  1. PANTOPRAZOLE [Concomitant]
     Active Substance: PANTOPRAZOLE
     Dosage: AS NEEDED
     Route: 048
  2. SODIUM CHLORIDE/SODIUM CHLORIDE [Concomitant]
     Dosage: REPORTED IN LABORATORY LETTER FROM MAR-2017
     Route: 048
  3. DEKRISTOL [Concomitant]
     Active Substance: CHOLECALCIFEROL
     Dosage: REPORTED IN LABORATORY LETTER FROM AUG-2016, 20.000
  4. IBANDRONIC ACID. [Concomitant]
     Active Substance: IBANDRONIC ACID
     Dosage: EVERY 3 MONTH, LAST ONE IN JAN-2017.?HEXAL 3 MG / 3ML
     Dates: end: 201701
  5. HYDROCORTISONE. [Concomitant]
     Active Substance: HYDROCORTISONE
     Indication: GLUCOCORTICOID DEFICIENCY
     Dosage: 1.5 TABLETS DAILY (1-0.5-0)
     Route: 048
     Dates: start: 20140909
  6. CITALOPRAM [Suspect]
     Active Substance: CITALOPRAM HYDROBROMIDE
     Indication: PRODUCT USED FOR UNKNOWN INDICATION
     Route: 065
     Dates: start: 201309, end: 201507
  7. RAMIPRIL. [Suspect]
     Active Substance: RAMIPRIL
     Indication: HYPERTENSION
     Dosage: 5 MG
     Route: 048
     Dates: start: 201401
  8. ESTRAMON PLASTER [Concomitant]
     Indication: OSTEOPOROSIS POSTMENOPAUSAL
     Dosage: ESTRAMON 25 MCG REPORTED IN LABORATORY LETTER FROM AUG-2016
     Route: 062
  9. SALINE [Concomitant]
     Active Substance: SODIUM CHLORIDE
     Dosage: 2 OR 3 TIMES DAILY, REPORTED IN LABORATORY LETTER FROM AUG-2016, SALINE TABLETS
     Route: 048
  10. SWEDEN TABLETS [Concomitant]
     Active Substance: UNSPECIFIED INGREDIENT
     Indication: PRODUCT USED FOR UNKNOWN INDICATION
     Dosage: 2 TABLETS DAILY, SWEDEN TABLETS
     Route: 048
  11. NOCUTIL [Suspect]
     Active Substance: DESMOPRESSIN ACETATE
     Indication: INAPPROPRIATE ANTIDIURETIC HORMONE SECRETION
     Dosage: 0.1-0.05-0.05, REPORTED IN LABORATORY LETTER FROM MAR-2017,0.1 MG TABLETS
     Route: 048
     Dates: start: 201409
  12. COLECALCIFEROL [Concomitant]
     Active Substance: CHOLECALCIFEROL
     Dosage: ONCE AT WEEK, REPORTED IN LABORATORY LETTER FROM MAR-2017

REACTIONS (13)
  - Nausea [Not Recovered/Not Resolved]
  - Abdominal discomfort [Recovered/Resolved]
  - Syncope [Recovered/Resolved]
  - Hyponatraemia [Recovering/Resolving]
  - Contusion [Recovering/Resolving]
  - Urticaria [Unknown]
  - Dysgeusia [Unknown]
  - Muscular weakness [Unknown]
  - Product prescribing error [Unknown]
  - Hypertension [Unknown]
  - Hyperhidrosis [Unknown]
  - Headache [Not Recovered/Not Resolved]
  - Urine output decreased [Unknown]

NARRATIVE: CASE EVENT DATE: 20150526
